FAERS Safety Report 5771303-3 (Version None)
Quarter: 2008Q2

REPORT INFORMATION
  Report Type: 
  Country: None (occurrence: None)
  Receive Date: 20080613
  Receipt Date: 20080606
  Transmission Date: 20081010
  Serious: Yes (Other)
  Sender: FDA-Public Use
  Company Number: US-BAYER-200818791NA

PATIENT
  Age: 26 Year
  Sex: Female
  Weight: 115 kg

DRUGS (1)
  1. YASMIN [Suspect]
     Indication: OVARIAN CYST
     Route: 048
     Dates: start: 20080302, end: 20080330

REACTIONS (5)
  - AGITATION [None]
  - BLINDNESS UNILATERAL [None]
  - DIPLOPIA [None]
  - EYE DISORDER [None]
  - EYE PAIN [None]
